FAERS Safety Report 8100716-X (Version None)
Quarter: 2012Q1

REPORT INFORMATION
  Report Type: 
  Country: None (occurrence: None)
  Receive Date: 20120129
  Receipt Date: 20111107
  Transmission Date: 20120608
  Serious: No
  Sender: FDA-Public Use
  Company Number: US-ABBOTT-11P-163-0872047-00

PATIENT
  Sex: Male

DRUGS (3)
  1. HUMIRA [Suspect]
     Route: 058
  2. HUMIRA [Suspect]
     Indication: PSORIASIS
     Dosage: INJECT 2 PENS ON DAY 1
     Route: 058
     Dates: start: 20111001
  3. HUMIRA [Suspect]
     Dosage: 1 PEN ON DAY 8
     Route: 058

REACTIONS (3)
  - MIGRAINE [None]
  - NASAL CONGESTION [None]
  - EPISTAXIS [None]
